FAERS Safety Report 6230191-1 (Version None)
Quarter: 2009Q2

REPORT INFORMATION
  Report Type: 
  Country: None (occurrence: None)
  Receive Date: 20090615
  Receipt Date: 20090615
  Transmission Date: 20091009
  Serious: Yes (Hospitalization, Other)
  Sender: FDA-Public Use
  Company Number: US-PFIZER INC-2009207228

PATIENT
  Sex: Male
  Weight: 102.4 kg

DRUGS (12)
  1. NEURONTIN [Suspect]
     Indication: PAIN IN EXTREMITY
     Dosage: 100 MG, 2X/DAY
     Dates: start: 20080101
  2. PENTOXIFYLLINE [Concomitant]
     Dosage: 400 MG, 2X/DAY
  3. CYMBALTA [Concomitant]
     Dosage: 60 MG, 1X/DAY
  4. ABILIFY [Concomitant]
     Dosage: UNK
  5. IMDUR [Concomitant]
     Dosage: 30 MG, 1X/DAY
  6. XANAX [Concomitant]
     Dosage: 0.5 MG, 3X/DAY, AS NEEDED
  7. MELOXICAM [Concomitant]
     Dosage: 7.5 MG, 1X/DAY
  8. CRESTOR [Concomitant]
     Dosage: 20 MG, 1X/DAY
  9. DARVOCET-N 100 [Concomitant]
     Dosage: UNK
  10. OXYCONTIN [Concomitant]
     Dosage: UNK
  11. AMBIEN [Concomitant]
     Dosage: 12.5 MG, 1X/DAY
  12. ALL OTHER THERAPEUTIC PRODUCTS [Concomitant]
     Dosage: 20 MG, 2X/DAY

REACTIONS (4)
  - ABASIA [None]
  - ABNORMAL BEHAVIOUR [None]
  - DEMENTIA [None]
  - HALLUCINATION, VISUAL [None]
